FAERS Safety Report 6521292-9 (Version None)
Quarter: 2009Q4

REPORT INFORMATION
  Report Type: 
  Country: None (occurrence: None)
  Receive Date: 20091230
  Receipt Date: 20091222
  Transmission Date: 20100525
  Serious: Yes (Hospitalization, Other)
  Sender: FDA-Public Use
  Company Number: BG-BAXTER-2009BH019475

PATIENT
  Age: 3 Year
  Sex: Male

DRUGS (1)
  1. GAMMAGARD LIQUID [Suspect]
     Indication: HYPOGAMMAGLOBULINAEMIA
     Route: 065
     Dates: start: 20090101

REACTIONS (3)
  - CYANOSIS [None]
  - DYSPNOEA [None]
  - HYPERSENSITIVITY [None]
